FAERS Safety Report 22329443 (Version 1)
Quarter: 2023Q2

REPORT INFORMATION
  Report Type: Report from Study
  Country: BR (occurrence: BR)
  Receive Date: 20230517
  Receipt Date: 20230517
  Transmission Date: 20230721
  Serious: Yes (Other)
  Sender: FDA-Public Use
  Company Number: BR-JNJFOC-20230535885

PATIENT
  Age: 17 Year
  Sex: Female
  Weight: 55 kg

DRUGS (1)
  1. INFLIXIMAB [Suspect]
     Active Substance: INFLIXIMAB
     Indication: Colitis ulcerative
     Route: 041
     Dates: start: 20230502

REACTIONS (1)
  - Asthmatic crisis [Not Recovered/Not Resolved]

NARRATIVE: CASE EVENT DATE: 20230508
